FAERS Safety Report 17598265 (Version 1)
Quarter: 2020Q1

REPORT INFORMATION
  Report Type: Spontaneous
  Country: CA (occurrence: CA)
  Receive Date: 20200330
  Receipt Date: 20200330
  Transmission Date: 20200409
  Serious: Yes (Hospitalization, Other)
  Sender: FDA-Public Use
  Company Number: NVSC2020CA086963

PATIENT
  Age: 63 Year
  Sex: Female

DRUGS (6)
  1. SANDOSTATIN [Suspect]
     Active Substance: OCTREOTIDE ACETATE
     Indication: METASTATIC BRONCHIAL CARCINOMA
  2. AFINITOR [Suspect]
     Active Substance: EVEROLIMUS
     Indication: NEUROENDOCRINE TUMOUR OF THE LUNG
     Dosage: 10 MG, QD (1 EVERY 1 DAYS)
     Route: 048
  3. SANDOSTATIN [Suspect]
     Active Substance: OCTREOTIDE ACETATE
     Indication: NEUROENDOCRINE TUMOUR OF THE LUNG
     Dosage: UNK
     Route: 065
  4. SANDOSTATIN LAR DEPOT [Suspect]
     Active Substance: OCTREOTIDE ACETATE
     Indication: METASTATIC BRONCHIAL CARCINOMA
  5. MORPHINE SULFATE. [Suspect]
     Active Substance: MORPHINE SULFATE
     Indication: PAIN
     Dosage: 5 MG, QD (6 EVERY 1 DAYS)
     Route: 042
  6. SANDOSTATIN LAR DEPOT [Suspect]
     Active Substance: OCTREOTIDE ACETATE
     Indication: NEUROENDOCRINE TUMOUR OF THE LUNG
     Dosage: 30 MG, QMO (1 EVERY 1 MONTHS)
     Route: 030

REACTIONS (56)
  - Cataract [Recovered/Resolved]
  - Inflammation [Recovered/Resolved]
  - Joint injury [Recovered/Resolved]
  - Mass [Recovered/Resolved]
  - Arthralgia [Recovered/Resolved]
  - Headache [Recovered/Resolved]
  - Blood glucose decreased [Recovered/Resolved]
  - Blood pressure diastolic decreased [Recovered/Resolved]
  - Choking [Recovered/Resolved]
  - Neuroendocrine tumour of the lung [Recovered/Resolved]
  - Asthenia [Recovered/Resolved]
  - Malaise [Recovered/Resolved]
  - Blood pressure increased [Recovered/Resolved]
  - Chest pain [Recovered/Resolved]
  - Bone cancer [Recovered/Resolved]
  - Blood pressure diastolic increased [Recovered/Resolved]
  - Blood pressure systolic increased [Recovered/Resolved]
  - Hypotension [Recovered/Resolved]
  - Musculoskeletal pain [Recovered/Resolved]
  - Nodule [Recovered/Resolved]
  - Cough [Recovered/Resolved]
  - Bowel movement irregularity [Recovered/Resolved]
  - Eructation [Recovered/Resolved]
  - Gastrointestinal motility disorder [Recovered/Resolved]
  - Pain [Recovered/Resolved]
  - Paraesthesia [Recovered/Resolved]
  - Swelling [Recovered/Resolved]
  - Abdominal pain lower [Recovered/Resolved]
  - Vomiting [Recovered/Resolved]
  - Fatigue [Recovered/Resolved]
  - Abdominal discomfort [Recovered/Resolved]
  - Contusion [Recovered/Resolved]
  - Gallbladder disorder [Recovered/Resolved]
  - Groin pain [Recovered/Resolved]
  - Hyperaesthesia [Recovered/Resolved]
  - Needle issue [Recovered/Resolved]
  - Malignant neoplasm progression [Recovered/Resolved]
  - Nausea [Recovered/Resolved]
  - Bone pain [Recovered/Resolved]
  - Gastroenteritis viral [Recovered/Resolved]
  - Gingival bleeding [Recovered/Resolved]
  - Hypertonic bladder [Recovered/Resolved]
  - Nervousness [Recovered/Resolved]
  - Odynophagia [Recovered/Resolved]
  - Peripheral coldness [Recovered/Resolved]
  - Urinary incontinence [Recovered/Resolved]
  - Product use in unapproved indication [Recovered/Resolved]
  - Diarrhoea [Recovered/Resolved]
  - Cholelithiasis [Recovered/Resolved]
  - Cold sweat [Recovered/Resolved]
  - Second primary malignancy [Recovered/Resolved]
  - Dizziness [Recovered/Resolved]
  - Off label use [Recovered/Resolved]
  - Epistaxis [Recovered/Resolved]
  - Pneumonia [Recovered/Resolved]
  - Drug ineffective [Recovered/Resolved]
